FAERS Safety Report 5083876-7 (Version None)
Quarter: 2006Q3

REPORT INFORMATION
  Report Type: 
  Country: None (occurrence: None)
  Receive Date: 20060727
  Receipt Date: 20060409
  Transmission Date: 20061208
  Serious: Yes (Other)
  Sender: FDA-Public Use
  Company Number: 2006054354

PATIENT
  Sex: Female

DRUGS (1)
  1. LYRICA [Suspect]
     Indication: NEURALGIA

REACTIONS (4)
  - ALOPECIA [None]
  - BLEPHARITIS [None]
  - DENTAL DISCOMFORT [None]
  - DRY MOUTH [None]
